FAERS Safety Report 18691576 (Version 2)
Quarter: 2021Q1

REPORT INFORMATION
  Report Type: Spontaneous
  Country: FR (occurrence: FR)
  Receive Date: 20210101
  Receipt Date: 20210127
  Transmission Date: 20210419
  Serious: Yes (Life-Threatening, Other)
  Sender: FDA-Public Use
  Company Number: FR-GLAXOSMITHKLINE-FR2020256608

PATIENT
  Age: 7 Year
  Sex: Female
  Weight: 20 kg

DRUGS (1)
  1. LAMOTRIGINE. [Suspect]
     Active Substance: LAMOTRIGINE
     Indication: PETIT MAL EPILEPSY
     Dosage: 40 MG, QD
     Route: 048
     Dates: start: 20201124, end: 20201211

REACTIONS (1)
  - SJS-TEN overlap [Recovering/Resolving]

NARRATIVE: CASE EVENT DATE: 20201211
